FAERS Safety Report 8336521-9 (Version None)
Quarter: 2012Q2

REPORT INFORMATION
  Report Type: 
  Country: None (occurrence: None)
  Receive Date: 20120504
  Receipt Date: 20120427
  Transmission Date: 20120825
  Serious: Yes (Life-Threatening, Hospitalization, Other)
  Sender: FDA-Public Use
  Company Number: JP-BRISTOL-MYERS SQUIBB COMPANY-16487506

PATIENT
  Age: 55 Year
  Sex: Male

DRUGS (10)
  1. AMARYL [Concomitant]
     Indication: DIABETES MELLITUS
     Route: 048
     Dates: start: 20040701, end: 20120317
  2. ACTOS [Concomitant]
     Indication: DIABETES MELLITUS
     Route: 048
     Dates: start: 20100801, end: 20120317
  3. TENORMIN [Concomitant]
     Indication: HYPERTENSION
     Route: 048
     Dates: start: 20100801
  4. DIFLUNISAL [Concomitant]
     Indication: HYPERTENSION
     Route: 048
     Dates: start: 20110901, end: 20120101
  5. DEPAS [Concomitant]
     Indication: ANXIETY DISORDER
     Route: 048
     Dates: start: 19960901
  6. METFORMIN HCL [Suspect]
     Indication: DIABETES MELLITUS
     Route: 048
     Dates: start: 20111115, end: 20120317
  7. NIFLAN [Suspect]
     Route: 048
     Dates: start: 20120307
  8. FLOMOX [Suspect]
     Indication: TONSILLITIS
     Route: 048
     Dates: start: 20120307
  9. NICARDIPINE HCL [Concomitant]
     Indication: HYPERTENSION
     Route: 048
     Dates: start: 19960901
  10. ROCEPHIN [Concomitant]
     Indication: TONSILLITIS
     Dates: start: 20120307, end: 20120307

REACTIONS (8)
  - RENAL IMPAIRMENT [None]
  - OESOPHAGITIS [None]
  - BLOOD PRESSURE DECREASED [None]
  - ASCITES [None]
  - CHOLELITHIASIS [None]
  - BACK PAIN [None]
  - HEPATITIS [None]
  - TONSILLITIS [None]
